FAERS Safety Report 4537054-8 (Version None)
Quarter: 2004Q4

REPORT INFORMATION
  Report Type: 
  Country: None (occurrence: None)
  Receive Date: 20041223
  Receipt Date: 20041019
  Transmission Date: 20050328
  Serious: Yes (Hospitalization)
  Sender: FDA-Public Use
  Company Number: US-BRISTOL-MYERS SQUIBB COMPANY-12737177

PATIENT
  Age: 52 Year
  Sex: Male
  Weight: 80 kg

DRUGS (11)
  1. ATAZANAVIR [Suspect]
     Indication: HIV INFECTION
     Route: 048
     Dates: start: 20040921, end: 20040928
  2. TENOFOVIR [Concomitant]
  3. LAMIVUDINE [Concomitant]
  4. RITONAVIR [Concomitant]
  5. INSULIN [Concomitant]
  6. LISINOPRIL [Concomitant]
  7. GEMFIBROZIL [Concomitant]
  8. NIACIN [Concomitant]
  9. RISPERIDONE [Concomitant]
  10. PERCOCET [Concomitant]
  11. OMEPRAZOLE [Concomitant]

REACTIONS (1)
  - JAUNDICE [None]
